FAERS Safety Report 12489859 (Version 1)
Quarter: 2016Q2

REPORT INFORMATION
  Report Type: Spontaneous
  Country: US (occurrence: US)
  Receive Date: 20160622
  Receipt Date: 20160622
  Transmission Date: 20160815
  Serious: No
  Sender: FDA-Public Use
  Company Number: US-TAKEDA-2016TUS010384

PATIENT
  Sex: Male

DRUGS (1)
  1. KAZANO [Suspect]
     Active Substance: ALOGLIPTIN BENZOATE\METFORMIN HYDROCHLORIDE
     Indication: DIABETES MELLITUS
     Dosage: 12.5/500 MG, BID
     Route: 048

REACTIONS (2)
  - Eye irritation [Recovered/Resolved]
  - Lacrimation increased [Recovered/Resolved]
